FAERS Safety Report 16070687 (Version 2)
Quarter: 2019Q2

REPORT INFORMATION
  Report Type: Spontaneous
  Country: BR (occurrence: BR)
  Receive Date: 20190314
  Receipt Date: 20190509
  Transmission Date: 20190711
  Serious: Yes (Other)
  Sender: FDA-Public Use
  Company Number: BR-ROCHE-2283335

PATIENT
  Sex: Female

DRUGS (6)
  1. BACILLUS CLAUSII [Concomitant]
     Active Substance: PROBIOTICS NOS
     Dosage: ENTEROGERMINA
     Route: 065
  2. PACLITAXEL. [Suspect]
     Active Substance: PACLITAXEL
     Indication: BREAST CANCER
     Route: 065
     Dates: start: 20181108
  3. HYDROCORTISONE. [Concomitant]
     Active Substance: HYDROCORTISONE
     Route: 065
  4. PERJETA [Suspect]
     Active Substance: PERTUZUMAB
     Indication: BREAST CANCER
     Route: 065
     Dates: start: 20181108
  5. HERCEPTIN [Suspect]
     Active Substance: TRASTUZUMAB
     Indication: BREAST CANCER
     Route: 042
  6. FUROSEMIDE. [Concomitant]
     Active Substance: FUROSEMIDE

REACTIONS (11)
  - Bradycardia [Unknown]
  - Blood pressure diastolic decreased [Unknown]
  - Nausea [Unknown]
  - Blood pressure systolic increased [Unknown]
  - Anaphylactic shock [Recovered/Resolved]
  - Cardiac disorder [Unknown]
  - Hypotension [Unknown]
  - Chills [Unknown]
  - Skin reaction [Recovered/Resolved]
  - Back pain [Unknown]
  - Diarrhoea [Unknown]
